FAERS Safety Report 23030778 (Version 3)
Quarter: 2023Q4

REPORT INFORMATION
  Report Type: Other
  Country: DE (occurrence: None)
  Receive Date: 20231005
  Receipt Date: 20231116
  Transmission Date: 20240109
  Serious: Yes (Hospitalization, Other)
  Sender: FDA-Public Use
  Company Number: DE-ROCHE-3246210

PATIENT
  Age: 69 Year
  Sex: Male
  Weight: 68 kg

DRUGS (4)
  1. ENSPRYNG [Suspect]
     Active Substance: SATRALIZUMAB-MWGE
     Indication: Neuromyelitis optica spectrum disorder
     Dosage: FREQUENCY 28 DAYS?APPLICATION : PFS
     Route: 058
     Dates: start: 20210816
  2. KEPPRA [Concomitant]
     Active Substance: LEVETIRACETAM
     Dosage: 1,250MG 1-0-0
  3. RAMIPRIL [Concomitant]
     Active Substance: RAMIPRIL
     Dosage: RAMIPRIL 1-0-0
  4. XARELTO [Concomitant]
     Active Substance: RIVAROXABAN
     Dosage: XARELTO 1-0-0

REACTIONS (16)
  - Abdominal pain [Recovered/Resolved]
  - Pancreatitis [Recovered/Resolved]
  - Gastrointestinal injury [Recovered/Resolved]
  - Pulmonary oedema [Recovered/Resolved]
  - COVID-19 [Recovered/Resolved]
  - Cholelithiasis [Recovered/Resolved]
  - Fatigue [Recovered/Resolved]
  - Asthenia [Not Recovered/Not Resolved]
  - Peripheral nerve injury [Not Recovered/Not Resolved]
  - Pneumonia [Recovered/Resolved]
  - Abnormal loss of weight [Not Recovered/Not Resolved]
  - Product storage error [Unknown]
  - Sepsis [Recovered/Resolved]
  - Hypoaesthesia [Not Recovered/Not Resolved]
  - Aphasia [Recovered/Resolved]
  - Loss of consciousness [Recovered/Resolved]

NARRATIVE: CASE EVENT DATE: 20211218
